FAERS Safety Report 22625109 (Version 1)
Quarter: 2023Q2

REPORT INFORMATION
  Report Type: Spontaneous
  Country: US (occurrence: US)
  Receive Date: 20230621
  Receipt Date: 20230621
  Transmission Date: 20230722
  Serious: No
  Sender: FDA-Public Use
  Company Number: US-GILEAD-2023-0632056

PATIENT
  Sex: Male

DRUGS (1)
  1. TRODELVY [Suspect]
     Active Substance: SACITUZUMAB GOVITECAN-HZIY
     Indication: Product used for unknown indication
     Dosage: UNK
     Route: 065

REACTIONS (5)
  - Infusion related reaction [Unknown]
  - Off label use [Recovered/Resolved]
  - Incorrect drug administration rate [Recovered/Resolved]
  - Product use issue [Unknown]
  - Product administration interrupted [Unknown]
